FAERS Safety Report 4532016-9 (Version None)
Quarter: 2004Q4

REPORT INFORMATION
  Report Type: 
  Country: None (occurrence: None)
  Receive Date: 20041220
  Receipt Date: 20041214
  Transmission Date: 20050328
  Serious: Yes (Hospitalization)
  Sender: FDA-Public Use
  Company Number: 12779849

PATIENT
  Sex: Male

DRUGS (14)
  1. NAVELBINE [Suspect]
     Indication: NON-SMALL CELL LUNG CANCER
     Dosage: 38.8MG CYCLIC
     Route: 042
     Dates: start: 20031028
  2. CISPLATIN [Suspect]
     Indication: NON-SMALL CELL LUNG CANCER
     Dosage: 77.6MG CYCLIC
     Route: 042
     Dates: start: 20031028
  3. GEMCITABINE [Suspect]
     Indication: NON-SMALL CELL LUNG CANCER
     Dosage: 1940MG CYCLIC
     Route: 042
     Dates: start: 20031028
  4. PANTOPRAZOLE [Concomitant]
  5. PLAVIX [Concomitant]
  6. ENALAPRIL MALEATE [Concomitant]
  7. TORSEMIDE [Concomitant]
  8. BISOPROLOL FUMARATE [Concomitant]
  9. PROPAFENONE HCL [Concomitant]
  10. THIAMAZOLE [Concomitant]
  11. DEXAMETHASONE [Concomitant]
  12. ZOFRAN [Concomitant]
  13. FENISTIL [Concomitant]
  14. PANTOZOL [Concomitant]

REACTIONS (4)
  - HYPOTENSION [None]
  - INFECTION [None]
  - PANCYTOPENIA [None]
  - SYNCOPE [None]
